FAERS Safety Report 10264988 (Version 1)
Quarter: 2014Q2

REPORT INFORMATION
  Report Type: Spontaneous
  Country: PE (occurrence: PE)
  Receive Date: 20140627
  Receipt Date: 20140627
  Transmission Date: 20141212
  Serious: Yes (Hospitalization)
  Sender: FDA-Public Use
  Company Number: PE-PFIZER INC-2014173208

PATIENT
  Age: 62 Year
  Sex: Female

DRUGS (1)
  1. XALATAN [Suspect]
     Route: 047

REACTIONS (2)
  - Limb injury [Unknown]
  - Eye inflammation [Unknown]
